FAERS Safety Report 9542392 (Version 1)
Quarter: 2013Q3

REPORT INFORMATION
  Report Type: Report from Study
  Country: GR (occurrence: GR)
  Receive Date: 20130923
  Receipt Date: 20130923
  Transmission Date: 20140515
  Serious: Yes (Death, Hospitalization)
  Sender: FDA-Public Use
  Company Number: GR-SANOFI-AVENTIS-2013SA092354

PATIENT
  Age: 67 Year
  Sex: Male
  Weight: 81 kg

DRUGS (7)
  1. CABAZITAXEL [Suspect]
     Indication: NON-SMALL CELL LUNG CANCER
     Route: 042
     Dates: start: 20130709, end: 20130709
  2. ESOMEPRAZOLE [Concomitant]
     Indication: PROPHYLAXIS
     Route: 042
     Dates: start: 20130726, end: 20130801
  3. BUDESONIDE [Concomitant]
     Indication: RESPIRATORY DISORDER
     Route: 055
     Dates: start: 20130714, end: 20130801
  4. PERINDOPRIL [Concomitant]
     Indication: HYPERTENSION
     Route: 048
     Dates: start: 20130723, end: 20130801
  5. IPRATROPIUM/SALBUTAMOL [Concomitant]
     Indication: RESPIRATORY DISORDER
     Dosage: DOSE: 0.5+2.5 MG
     Route: 055
     Dates: start: 20130714, end: 20130801
  6. RANITIDINE [Concomitant]
     Indication: PROPHYLAXIS
     Route: 042
     Dates: start: 20130714, end: 20130801
  7. ALBUMIN [Concomitant]
     Indication: HYPOALBUMINAEMIA
     Dosage: DOSE: 20 GR
     Route: 042
     Dates: start: 20130728, end: 20130730

REACTIONS (4)
  - Lung infection [Fatal]
  - Febrile neutropenia [Recovered/Resolved]
  - Thrombocytopenia [Not Recovered/Not Resolved]
  - Dyspnoea [Not Recovered/Not Resolved]
